FAERS Safety Report 5619099-X (Version None)
Quarter: 2008Q1

REPORT INFORMATION
  Report Type: 
  Country: None (occurrence: None)
  Receive Date: 20080207
  Receipt Date: 20080128
  Transmission Date: 20080703
  Serious: Yes (Other)
  Sender: FDA-Public Use
  Company Number: GB-ABBOTT-07P-167-0377569-00

PATIENT
  Sex: Male

DRUGS (1)
  1. DEPAKOTE [Suspect]
     Indication: BIPOLAR DISORDER
     Route: 048
     Dates: start: 20061201, end: 20070501

REACTIONS (12)
  - AMNESIA [None]
  - CONFUSIONAL STATE [None]
  - COORDINATION ABNORMAL [None]
  - DISORIENTATION [None]
  - DYSARTHRIA [None]
  - HALLUCINATION [None]
  - MEMORY IMPAIRMENT [None]
  - PARANOIA [None]
  - STUPOR [None]
  - THOUGHT BLOCKING [None]
  - TREMOR [None]
  - UNEVALUABLE EVENT [None]
